FAERS Safety Report 22516516 (Version 1)
Quarter: 2023Q2

REPORT INFORMATION
  Report Type: Spontaneous
  Country: US (occurrence: US)
  Receive Date: 20230603
  Receipt Date: 20230603
  Transmission Date: 20230721
  Serious: Yes (Hospitalization, Other)
  Sender: FDA-Public Use
  Company Number: US-SPECGX-T202202331

PATIENT
  Age: 41 Year
  Sex: Female

DRUGS (8)
  1. FENTANYL TRANSDERMAL SYSTEM [Suspect]
     Active Substance: FENTANYL
     Indication: Gastroenteritis viral
     Dosage: UNK
     Route: 062
     Dates: start: 2012
  2. HYDROMORPHONE [Suspect]
     Active Substance: HYDROMORPHONE
     Indication: Gastroenteritis viral
     Dosage: 4 MILLIGRAM, Q6H
     Route: 065
     Dates: start: 2011, end: 2012
  3. HYDROMORPHONE [Suspect]
     Active Substance: HYDROMORPHONE
     Dosage: UNK
     Route: 065
     Dates: start: 2014
  4. BUPRENORPHINE\NALOXONE [Suspect]
     Active Substance: BUPRENORPHINE\NALOXONE
     Indication: Narcotic bowel syndrome
     Dosage: UNK (8 AND 2 MG, RESPECTIVELY, IN THE MORNING; 4 AND 1 MG AT NOON; AND 8 AND 2 MG AT BEDTIME)
     Route: 060
     Dates: start: 2019
  5. MORPHINE [Suspect]
     Active Substance: MORPHINE
     Indication: Gastroenteritis viral
     Dosage: UNK
     Route: 065
     Dates: start: 2011
  6. CLONIDINE [Concomitant]
     Active Substance: CLONIDINE
     Indication: Drug withdrawal maintenance therapy
     Dosage: UNK
     Route: 065
     Dates: start: 2014
  7. AMITRIPTYLINE [Concomitant]
     Active Substance: AMITRIPTYLINE
     Indication: Drug withdrawal maintenance therapy
     Dosage: UNK
     Route: 065
     Dates: start: 2014
  8. LORAZEPAM [Concomitant]
     Active Substance: LORAZEPAM
     Indication: Drug withdrawal maintenance therapy
     Dosage: UNK
     Route: 065
     Dates: start: 2014

REACTIONS (18)
  - Narcotic bowel syndrome [Recovered/Resolved]
  - Electrocardiogram QT prolonged [Unknown]
  - Gastritis [Recovered/Resolved]
  - Duodenitis [Unknown]
  - Cholelithiasis [Unknown]
  - Ventricular fibrillation [Unknown]
  - Hypokalaemia [Unknown]
  - Diabetic ketoacidosis [Unknown]
  - Cardiac arrest [Unknown]
  - Implantable defibrillator insertion [Unknown]
  - Cholecystectomy [Unknown]
  - Pulmonary hypertension [Unknown]
  - Cardiomegaly [Unknown]
  - Cholecystitis acute [Unknown]
  - Left ventricular dysfunction [Unknown]
  - Ejection fraction decreased [Unknown]
  - Drug withdrawal syndrome [Unknown]
  - Product use in unapproved indication [Unknown]

NARRATIVE: CASE EVENT DATE: 20110101
